FAERS Safety Report 18052979 (Version 5)
Quarter: 2021Q1

REPORT INFORMATION
  Report Type: Report from Study
  Country: None (occurrence: US)
  Receive Date: 20200721
  Receipt Date: 20210224
  Transmission Date: 20210419
  Serious: Yes (Hospitalization, Other)
  Sender: FDA-Public Use
  Company Number: US-ABBVIE-20K-163-3491888-00

PATIENT
  Age: 49 Year
  Sex: Female
  Weight: 86.26 kg

DRUGS (12)
  1. PREDNISONE. [Concomitant]
     Active Substance: PREDNISONE
     Indication: RHEUMATOID ARTHRITIS
  2. PREDNISONE. [Concomitant]
     Active Substance: PREDNISONE
     Indication: RHEUMATOID ARTHRITIS
  3. RINVOQ [Suspect]
     Active Substance: UPADACITINIB
     Route: 048
     Dates: start: 202008
  4. NORCO [Concomitant]
     Active Substance: ACETAMINOPHEN\HYDROCODONE BITARTRATE
     Indication: PRODUCT USED FOR UNKNOWN INDICATION
     Dosage: 5/325
  5. LISINOPRIL. [Concomitant]
     Active Substance: LISINOPRIL
     Indication: BLOOD PRESSURE MEASUREMENT
  6. RINVOQ [Suspect]
     Active Substance: UPADACITINIB
     Indication: RHEUMATOID ARTHRITIS
     Dosage: LESS THAN A MONTH
     Route: 048
     Dates: start: 202006, end: 20200717
  7. RINVOQ [Suspect]
     Active Substance: UPADACITINIB
     Route: 048
     Dates: start: 2020, end: 202007
  8. PEPCID [Concomitant]
     Active Substance: FAMOTIDINE
     Indication: PRODUCT USED FOR UNKNOWN INDICATION
  9. XANAX [Concomitant]
     Active Substance: ALPRAZOLAM
     Indication: ANXIETY
     Dosage: AS NEEDED
  10. XANAX [Concomitant]
     Active Substance: ALPRAZOLAM
     Indication: TREMOR
  11. KEFLEX [Concomitant]
     Active Substance: CEPHALEXIN
     Indication: PRODUCT USED FOR UNKNOWN INDICATION
  12. RINVOQ [Suspect]
     Active Substance: UPADACITINIB
     Route: 048
     Dates: start: 20200717, end: 2020

REACTIONS (19)
  - Fatigue [Recovered/Resolved]
  - Pyelonephritis [Recovered/Resolved]
  - Influenza like illness [Recovered/Resolved]
  - Hyperhidrosis [Recovered/Resolved]
  - Subcutaneous abscess [Unknown]
  - Dermal cyst [Unknown]
  - Escherichia bacteraemia [Recovered/Resolved]
  - Cystitis [Unknown]
  - Urinary tract infection [Recovered/Resolved]
  - Escherichia bacteraemia [Recovering/Resolving]
  - Lethargy [Recovered/Resolved]
  - Rheumatoid arthritis [Recovering/Resolving]
  - Sepsis [Recovering/Resolving]
  - Kidney enlargement [Recovered/Resolved]
  - Urosepsis [Recovering/Resolving]
  - Hypotension [Recovered/Resolved]
  - White blood cell count increased [Recovering/Resolving]
  - Feeling cold [Recovered/Resolved]
  - Tachycardia [Recovered/Resolved]

NARRATIVE: CASE EVENT DATE: 202007
